FAERS Safety Report 8121632-3 (Version None)
Quarter: 2012Q1

REPORT INFORMATION
  Report Type: 
  Country: None (occurrence: None)
  Receive Date: 20120208
  Receipt Date: 20120208
  Transmission Date: 20120608
  Serious: No
  Sender: FDA-Public Use
  Company Number: None

PATIENT
  Age: 60 Year
  Sex: Male
  Weight: 68.492 kg

DRUGS (1)
  1. APAP W/ CODEINE [Suspect]
     Indication: ROTATOR CUFF SYNDROME
     Dosage: 1TO2
     Route: 048
     Dates: start: 20031208, end: 20120207

REACTIONS (6)
  - NAUSEA [None]
  - ABDOMINAL PAIN [None]
  - PRODUCT SUBSTITUTION ISSUE [None]
  - PRODUCT TASTE ABNORMAL [None]
  - DRUG INEFFECTIVE [None]
  - GASTROINTESTINAL PAIN [None]
